FAERS Safety Report 8760668 (Version 2)
Quarter: 2013Q4

REPORT INFORMATION
  Report Type: Spontaneous
  Country: GB (occurrence: GB)
  Receive Date: 20120830
  Receipt Date: 20131105
  Transmission Date: 20140711
  Serious: Yes (Disabling, Other)
  Sender: FDA-Public Use
  Company Number: GB-009507513-1208GBR010350

PATIENT
  Age: 76 Year
  Sex: Female

DRUGS (3)
  1. FOSAMAX [Suspect]
     Route: 048
  2. SIMVASTATIN [Concomitant]
  3. MAXOLON [Concomitant]

REACTIONS (2)
  - Osteonecrosis of jaw [Unknown]
  - Wrist fracture [Unknown]
